FAERS Safety Report 7782533-3 (Version None)
Quarter: 2011Q3

REPORT INFORMATION
  Report Type: 
  Country: None (occurrence: None)
  Receive Date: 20110923
  Receipt Date: 20110915
  Transmission Date: 20111222
  Serious: Yes (Hospitalization)
  Sender: FDA-Public Use
  Company Number: 2011SP042363

PATIENT
  Age: 68 Year
  Sex: Male

DRUGS (9)
  1. ASPIRIN [Concomitant]
  2. CANDESARTAN CILEXETIL [Concomitant]
  3. INTERFERON ALFA (MANUFACTURER UNKNOWN) (INTERFERON ALFA-2B) [Suspect]
     Dosage: 3 MIU;QD;SC
     Route: 058
     Dates: start: 20090801, end: 20110301
  4. PANTOPRAZOLE [Concomitant]
  5. BISOPROLOL [Concomitant]
  6. GLYBURIDE [Concomitant]
  7. HUMAN INSULIN [Concomitant]
  8. SIMVASTATIN [Concomitant]
  9. BEVACIZUMAB (BEVACIZUMAB) [Suspect]
     Dosage: 10 MG/KG;QOW; IV
     Route: 042
     Dates: start: 20090801, end: 20110301

REACTIONS (1)
  - METABOLIC ACIDOSIS [None]
